FAERS Safety Report 8443023-8 (Version None)
Quarter: 2012Q2

REPORT INFORMATION
  Report Type: 
  Country: None (occurrence: None)
  Receive Date: 20120615
  Receipt Date: 20120611
  Transmission Date: 20120825
  Serious: Yes (Other)
  Sender: FDA-Public Use
  Company Number: BR-PFIZER INC-2012140953

PATIENT
  Age: 51 Year
  Sex: Female

DRUGS (6)
  1. CORTISONE [Concomitant]
     Dosage: UNK
  2. COLESTYRAMINE/DICLOFENAC [Concomitant]
     Dosage: UNK
  3. DORFLEX [Concomitant]
     Dosage: UNK
  4. LYRICA [Suspect]
     Route: 048
  5. LOSARTAN [Concomitant]
     Dosage: UNK
  6. MEFENAMIC ACID [Concomitant]
     Dosage: UNK

REACTIONS (6)
  - BLOOD PRESSURE INCREASED [None]
  - CRYING [None]
  - DEPRESSED MOOD [None]
  - BEDRIDDEN [None]
  - SWELLING [None]
  - PAIN [None]
